FAERS Safety Report 4943478-7 (Version None)
Quarter: 2006Q1

REPORT INFORMATION
  Report Type: 
  Country: None (occurrence: None)
  Receive Date: 20060309
  Receipt Date: 20060227
  Transmission Date: 20060701
  Serious: Yes (Hospitalization)
  Sender: FDA-Public Use
  Company Number: 2006029347

PATIENT
  Age: 18 Year
  Sex: Female

DRUGS (1)
  1. ZOLOFT [Suspect]
     Indication: DEPRESSION
     Dates: start: 20050101

REACTIONS (2)
  - DEPRESSION [None]
  - SUICIDE ATTEMPT [None]
